FAERS Safety Report 6380051-0 (Version None)
Quarter: 2009Q3

REPORT INFORMATION
  Report Type: 
  Country: None (occurrence: None)
  Receive Date: 20090928
  Receipt Date: 20090924
  Transmission Date: 20100115
  Serious: No
  Sender: FDA-Public Use
  Company Number: US-MERCK-0907USA00415

PATIENT
  Age: 15 Year
  Sex: Male

DRUGS (10)
  1. SINGULAIR [Suspect]
     Indication: HYPERSENSITIVITY
     Route: 048
     Dates: start: 20080201
  2. SINGULAIR [Suspect]
     Route: 048
  3. SINGULAIR [Suspect]
     Route: 048
     Dates: start: 20090101, end: 20090501
  4. SINGULAIR [Suspect]
     Indication: ASTHMA
     Route: 048
     Dates: start: 20080201
  5. SINGULAIR [Suspect]
     Route: 048
  6. SINGULAIR [Suspect]
     Route: 048
     Dates: start: 20090101, end: 20090501
  7. ASMANEX TWISTHALER [Concomitant]
     Indication: ASTHMA
     Route: 065
  8. ASMANEX TWISTHALER [Concomitant]
     Indication: HYPERSENSITIVITY
     Route: 065
  9. ALBUTEROL [Concomitant]
     Indication: ASTHMA
     Route: 065
  10. ALBUTEROL [Concomitant]
     Indication: HYPERSENSITIVITY
     Route: 065

REACTIONS (2)
  - DEPRESSED MOOD [None]
  - HALLUCINATION, VISUAL [None]
